FAERS Safety Report 4928832-1 (Version None)
Quarter: 2006Q1

REPORT INFORMATION
  Report Type: 
  Country: None (occurrence: None)
  Receive Date: 20060224
  Receipt Date: 20060210
  Transmission Date: 20060701
  Serious: Yes (Other)
  Sender: FDA-Public Use
  Company Number: VNL_0056_2006

PATIENT
  Age: 47 Year
  Sex: Female

DRUGS (3)
  1. APO-GO [Suspect]
     Indication: PARKINSON'S DISEASE
     Dosage: 60 MG CON SC
     Route: 058
  2. MADOPAR CR [Concomitant]
  3. MADOPAR [Concomitant]

REACTIONS (3)
  - ABSCESS [None]
  - NODULE [None]
  - SKIN REACTION [None]
